FAERS Safety Report 8161347-9 (Version None)
Quarter: 2012Q1

REPORT INFORMATION
  Report Type: 
  Country: None (occurrence: None)
  Receive Date: 20120224
  Receipt Date: 20120214
  Transmission Date: 20120608
  Serious: Yes (Hospitalization)
  Sender: FDA-Public Use
  Company Number: ES-JNJFOC-20120208808

PATIENT
  Sex: Male
  Weight: 96.5 kg

DRUGS (6)
  1. DICLOFENAC SODIUM [Concomitant]
     Indication: INJECTION SITE PAIN
     Dates: start: 20110911
  2. DICLOFENAC SODIUM [Concomitant]
     Dates: start: 20111010
  3. PALIPERIDONE PALMITATE [Suspect]
     Route: 030
     Dates: start: 20111004
  4. OLANZAPINE [Concomitant]
     Indication: SCHIZOPHRENIA
     Dates: start: 20110915
  5. PALIPERIDONE PALMITATE [Suspect]
     Indication: SCHIZOPHRENIA
     Route: 030
     Dates: start: 20120206
  6. DICLOFENAC SODIUM [Concomitant]
     Dates: start: 20110912

REACTIONS (1)
  - PSYCHOTIC DISORDER [None]
